FAERS Safety Report 21657054 (Version 1)
Quarter: 2022Q4

REPORT INFORMATION
  Report Type: Spontaneous
  Country: FR (occurrence: FR)
  Receive Date: 20221129
  Receipt Date: 20221129
  Transmission Date: 20230112
  Serious: Yes (Disabling)
  Sender: FDA-Public Use
  Company Number: FR-GSKCCFEMEA-Case-01609104_AE-64231

PATIENT

DRUGS (1)
  1. FLUTICASONE FUROATE\VILANTEROL TRIFENATATE [Suspect]
     Active Substance: FLUTICASONE FUROATE\VILANTEROL TRIFENATATE
     Indication: Cough
     Dosage: 2 PUFF(S)

REACTIONS (13)
  - Stomatitis [Unknown]
  - Oral discomfort [Unknown]
  - Dry mouth [Unknown]
  - Aptyalism [Unknown]
  - Speech disorder [Unknown]
  - Pain [Unknown]
  - Tongue disorder [Unknown]
  - Dysgeusia [Unknown]
  - Feeding disorder [Unknown]
  - Discomfort [Unknown]
  - Hypersensitivity [Unknown]
  - Product use in unapproved indication [Unknown]
  - Product prescribing error [Unknown]
